FAERS Safety Report 11782303 (Version 9)
Quarter: 2020Q3

REPORT INFORMATION
  Report Type: Spontaneous
  Country: CA (occurrence: CA)
  Receive Date: 20151127
  Receipt Date: 20200927
  Transmission Date: 20201102
  Serious: Yes (Hospitalization)
  Sender: FDA-Public Use
  Company Number: CA-ROCHE-1667732

PATIENT
  Age: 64 Year
  Sex: Female
  Weight: 69 kg

DRUGS (109)
  1. TIZANIDINE. [Suspect]
     Active Substance: TIZANIDINE
     Indication: PRODUCT USED FOR UNKNOWN INDICATION
     Route: 048
  2. ZANTAC [Suspect]
     Active Substance: RANITIDINE HYDROCHLORIDE
     Indication: PRODUCT USED FOR UNKNOWN INDICATION
     Route: 065
  3. FOLIC ACID. [Suspect]
     Active Substance: FOLIC ACID
     Indication: PRODUCT USED FOR UNKNOWN INDICATION
     Route: 065
  4. INULIN [Suspect]
     Active Substance: INULIN
     Indication: PRODUCT USED FOR UNKNOWN INDICATION
     Route: 065
  5. VITAMIN A [Suspect]
     Active Substance: VITAMIN A
     Route: 048
  6. ALENDRONATE SODIUM. [Suspect]
     Active Substance: ALENDRONATE SODIUM
     Route: 048
  7. CHOLINE BITARTRATE [Suspect]
     Active Substance: CHOLINE BITARTRATE
     Indication: PRODUCT USED FOR UNKNOWN INDICATION
     Route: 065
  8. DULOXETINE HYDROCHLORIDE. [Suspect]
     Active Substance: DULOXETINE HYDROCHLORIDE
     Route: 048
  9. LACTOBACILLUS RHAMNOSUS [Suspect]
     Active Substance: LACTOBACILLUS RHAMNOSUS
     Indication: PRODUCT USED FOR UNKNOWN INDICATION
     Route: 065
  10. RANITIDINE. [Suspect]
     Active Substance: RANITIDINE
     Indication: PRODUCT USED FOR UNKNOWN INDICATION
     Route: 065
  11. RIBOFLAVIN [Suspect]
     Active Substance: RIBOFLAVIN
     Indication: PRODUCT USED FOR UNKNOWN INDICATION
     Route: 065
  12. SULFAMETHOXAZOLE [Suspect]
     Active Substance: SULFAMETHOXAZOLE
     Indication: PRODUCT USED FOR UNKNOWN INDICATION
     Route: 065
  13. NASONEX [Suspect]
     Active Substance: MOMETASONE FUROATE
     Indication: PRODUCT USED FOR UNKNOWN INDICATION
     Dosage: SPRAY, METERED?DOSE
     Route: 065
  14. APO?SULFATRIM [Suspect]
     Active Substance: SULFAMETHOXAZOLE\TRIMETHOPRIM
     Indication: PRODUCT USED FOR UNKNOWN INDICATION
     Route: 065
  15. APO?BACLOFEN [Suspect]
     Active Substance: BACLOFEN
     Indication: PRODUCT USED FOR UNKNOWN INDICATION
     Route: 048
  16. CYMBALTA [Suspect]
     Active Substance: DULOXETINE HYDROCHLORIDE
     Indication: PAIN
     Route: 048
  17. CYMBALTA [Suspect]
     Active Substance: DULOXETINE HYDROCHLORIDE
     Route: 048
  18. VITAMIN A [Suspect]
     Active Substance: VITAMIN A
     Indication: PRODUCT USED FOR UNKNOWN INDICATION
     Route: 048
  19. VITAMIN A [Suspect]
     Active Substance: VITAMIN A
     Route: 065
  20. DOCOSAHEXAENOIC ACID;EICOSAPENTAENOIC ACID [Suspect]
     Active Substance: DOCONEXENT\ICOSAPENT
     Indication: PRODUCT USED FOR UNKNOWN INDICATION
     Route: 065
  21. FUROSEMIDE. [Suspect]
     Active Substance: FUROSEMIDE
     Indication: PRODUCT USED FOR UNKNOWN INDICATION
     Route: 065
  22. NIACINAMIDE [Suspect]
     Active Substance: NIACINAMIDE
     Indication: PRODUCT USED FOR UNKNOWN INDICATION
     Route: 048
  23. NORTRIPTYLINE HYDROCHLORIDE. [Suspect]
     Active Substance: NORTRIPTYLINE HYDROCHLORIDE
     Indication: PRODUCT USED FOR UNKNOWN INDICATION
     Route: 048
  24. SULFADIAZINE. [Suspect]
     Active Substance: SULFADIAZINE
     Indication: PAIN
     Route: 065
  25. IMODIUM [Suspect]
     Active Substance: LOPERAMIDE HYDROCHLORIDE
     Indication: PRODUCT USED FOR UNKNOWN INDICATION
     Route: 042
  26. VITAMIN A [Suspect]
     Active Substance: VITAMIN A
     Route: 048
  27. ALENDRONATE SODIUM. [Suspect]
     Active Substance: ALENDRONATE SODIUM
     Indication: PRODUCT USED FOR UNKNOWN INDICATION
     Route: 065
  28. FRUCTOSE [Suspect]
     Active Substance: FRUCTOSE
     Indication: PRODUCT USED FOR UNKNOWN INDICATION
     Route: 065
  29. GLICLAZIDE [Suspect]
     Active Substance: GLICLAZIDE
     Indication: PRODUCT USED FOR UNKNOWN INDICATION
     Route: 065
  30. RIBOFLAVIN 5^?PHOSPHATE SODIUM [Suspect]
     Active Substance: RIBOFLAVIN 5^-PHOSPHATE SODIUM
     Indication: PRODUCT USED FOR UNKNOWN INDICATION
     Route: 065
  31. SENNOSIDES. [Suspect]
     Active Substance: SENNOSIDES
     Indication: PRODUCT USED FOR UNKNOWN INDICATION
     Route: 048
  32. THIAMINE HYDROCHLORIDE. [Suspect]
     Active Substance: THIAMINE HYDROCHLORIDE
     Indication: PRODUCT USED FOR UNKNOWN INDICATION
     Route: 065
  33. CELLCEPT [Suspect]
     Active Substance: MYCOPHENOLATE MOFETIL\MYCOPHENOLATE MOFETIL HYDROCHLORIDE
     Indication: PRODUCT USED FOR UNKNOWN INDICATION
     Dosage: THERAPY DURATION: 3 DAYS
     Route: 065
  34. ACIDOPHILUS [Suspect]
     Active Substance: LACTOBACILLUS ACIDOPHILUS
     Indication: PRODUCT USED FOR UNKNOWN INDICATION
     Route: 065
  35. FOSAMAX [Suspect]
     Active Substance: ALENDRONATE SODIUM
     Indication: PRODUCT USED FOR UNKNOWN INDICATION
     Route: 048
  36. CYMBALTA [Suspect]
     Active Substance: DULOXETINE HYDROCHLORIDE
     Route: 048
  37. HYDROMORPHONE [Suspect]
     Active Substance: HYDROMORPHONE
     Indication: PRODUCT USED FOR UNKNOWN INDICATION
     Route: 065
  38. OMEGA?3 ACIDS [Suspect]
     Active Substance: OMEGA-3 FATTY ACIDS
     Indication: PRODUCT USED FOR UNKNOWN INDICATION
     Route: 065
  39. POTASSIUM CHLORIDE. [Suspect]
     Active Substance: POTASSIUM CHLORIDE
     Indication: PRODUCT USED FOR UNKNOWN INDICATION
     Route: 065
  40. SENNOSIDE A+B [Suspect]
     Active Substance: SENNOSIDES A AND B
     Indication: PRODUCT USED FOR UNKNOWN INDICATION
     Route: 065
  41. APO?ZOPICLONE [Suspect]
     Active Substance: ZOPICLONE
     Indication: PRODUCT USED FOR UNKNOWN INDICATION
     Route: 048
  42. CREATINE [Suspect]
     Active Substance: CREATINE
     Indication: PRODUCT USED FOR UNKNOWN INDICATION
     Route: 065
  43. HORSE CHESTNUT EXTRACT [Suspect]
     Active Substance: HORSE CHESTNUT
     Indication: PRODUCT USED FOR UNKNOWN INDICATION
     Route: 065
  44. VITAMIN A [Suspect]
     Active Substance: VITAMIN A
     Route: 048
  45. VITAMIN A [Suspect]
     Active Substance: VITAMIN A
     Route: 048
  46. ALFACALCIDOL [Suspect]
     Active Substance: ALFACALCIDOL
     Indication: PRODUCT USED FOR UNKNOWN INDICATION
     Route: 065
  47. LACTOBACILLUS ACIDOPHILUS [Suspect]
     Active Substance: LACTOBACILLUS ACIDOPHILUS
     Indication: PRODUCT USED FOR UNKNOWN INDICATION
     Route: 065
  48. SULFALENE [Suspect]
     Active Substance: SULFALENE
     Indication: PRODUCT USED FOR UNKNOWN INDICATION
     Route: 065
  49. ANTITHYMOCYTE IMMUNOGLOBULIN [Suspect]
     Active Substance: THYMOCYTE IMMUNE GLOBULIN NOS
     Indication: PRODUCT USED FOR UNKNOWN INDICATION
     Route: 048
  50. CYANOCOBALAMIN. [Suspect]
     Active Substance: CYANOCOBALAMIN
     Route: 065
  51. VITAMIN C [Suspect]
     Active Substance: ASCORBIC ACID
     Indication: PRODUCT USED FOR UNKNOWN INDICATION
     Route: 065
  52. SENOKOT [Suspect]
     Active Substance: SENNOSIDES
     Indication: PRODUCT USED FOR UNKNOWN INDICATION
     Route: 065
  53. WARFARIN SODIUM. [Suspect]
     Active Substance: WARFARIN SODIUM
     Indication: PRODUCT USED FOR UNKNOWN INDICATION
     Route: 065
  54. APO?CAL [Suspect]
     Active Substance: CALCIUM CARBONATE
     Indication: PRODUCT USED FOR UNKNOWN INDICATION
     Route: 065
  55. VITAMIN A [Suspect]
     Active Substance: VITAMIN A
     Route: 048
  56. VITAMIN A [Suspect]
     Active Substance: VITAMIN A
     Route: 048
  57. VITAMIN A [Suspect]
     Active Substance: VITAMIN A
     Route: 048
  58. CREATININE [Suspect]
     Active Substance: CREATININE
     Indication: PRODUCT USED FOR UNKNOWN INDICATION
     Route: 065
  59. D?ALPHA TOCOPHEROL [Suspect]
     Active Substance: .ALPHA.-TOCOPHEROL, D-
     Indication: PRODUCT USED FOR UNKNOWN INDICATION
     Route: 065
  60. SULFAMETHOXAZOLE [Suspect]
     Active Substance: SULFAMETHOXAZOLE
     Route: 065
  61. TRIMETHOPRIM. [Suspect]
     Active Substance: TRIMETHOPRIM
     Indication: PRODUCT USED FOR UNKNOWN INDICATION
     Route: 048
  62. WARFARIN [Suspect]
     Active Substance: WARFARIN
     Indication: PRODUCT USED FOR UNKNOWN INDICATION
     Route: 065
  63. CYANOCOBALAMIN. [Suspect]
     Active Substance: CYANOCOBALAMIN
     Indication: PRODUCT USED FOR UNKNOWN INDICATION
     Route: 065
  64. ATIVAN [Suspect]
     Active Substance: LORAZEPAM
     Indication: PRODUCT USED FOR UNKNOWN INDICATION
     Route: 065
  65. LYRICA [Suspect]
     Active Substance: PREGABALIN
     Indication: PRODUCT USED FOR UNKNOWN INDICATION
     Route: 065
  66. MELATONIN [Suspect]
     Active Substance: MELATONIN
     Indication: PRODUCT USED FOR UNKNOWN INDICATION
     Route: 065
  67. NASONEX [Suspect]
     Active Substance: MOMETASONE FUROATE
     Indication: PRODUCT USED FOR UNKNOWN INDICATION
     Route: 065
  68. NORTRIPTYLINE HYDROCHLORIDE. [Suspect]
     Active Substance: NORTRIPTYLINE HYDROCHLORIDE
     Indication: PRODUCT USED FOR UNKNOWN INDICATION
     Route: 065
  69. LACTOBACILLUS CASEI [Suspect]
     Active Substance: LACTOBACILLUS CASEI
     Indication: PRODUCT USED FOR UNKNOWN INDICATION
     Route: 065
  70. RIBOFLAVIN [Suspect]
     Active Substance: RIBOFLAVIN
     Indication: PRODUCT USED FOR UNKNOWN INDICATION
     Route: 065
  71. VITAMIN B1 [Suspect]
     Active Substance: THIAMINE HYDROCHLORIDE
     Indication: PRODUCT USED FOR UNKNOWN INDICATION
     Route: 065
  72. VITAMIN A [Suspect]
     Active Substance: VITAMIN A
     Route: 048
  73. AMINOBENZOIC ACID [Suspect]
     Active Substance: AMINOBENZOIC ACID
     Indication: PRODUCT USED FOR UNKNOWN INDICATION
     Route: 065
  74. CALCIUM [Suspect]
     Active Substance: CALCIUM
     Indication: PRODUCT USED FOR UNKNOWN INDICATION
     Route: 065
  75. BROMHEXINE HYDROCHLORIDE [Suspect]
     Active Substance: BROMHEXINE HYDROCHLORIDE
     Indication: PRODUCT USED FOR UNKNOWN INDICATION
     Route: 065
  76. DOCOSAHEXAENOIC ACID [Suspect]
     Active Substance: DOCONEXENT
     Indication: PRODUCT USED FOR UNKNOWN INDICATION
     Route: 065
  77. INSULIN [Suspect]
     Active Substance: INSULIN NOS
     Indication: PRODUCT USED FOR UNKNOWN INDICATION
     Route: 065
  78. MYCOPHENOLATE MOFETIL HYDROCHLORIDE [Suspect]
     Active Substance: MYCOPHENOLATE MOFETIL HYDROCHLORIDE
     Indication: PRODUCT USED FOR UNKNOWN INDICATION
     Route: 065
  79. NICOTINAMIDE [Suspect]
     Active Substance: NIACINAMIDE
     Indication: PRODUCT USED FOR UNKNOWN INDICATION
     Route: 065
  80. SULFADIAZINE. [Suspect]
     Active Substance: SULFADIAZINE
     Indication: PRODUCT USED FOR UNKNOWN INDICATION
     Route: 065
  81. ALKA?SELTZER [Suspect]
     Active Substance: ANHYDROUS CITRIC ACID\ASPIRIN\SODIUM BICARBONATE
     Indication: PRODUCT USED FOR UNKNOWN INDICATION
     Dosage: ALKA?SELTZER RELIEF?CHEWS ?TABLET (CHEWABLE
     Route: 065
  82. LORATADINE. [Suspect]
     Active Substance: LORATADINE
     Indication: PRODUCT USED FOR UNKNOWN INDICATION
     Route: 065
  83. PREDNISONE. [Suspect]
     Active Substance: PREDNISONE
     Indication: PRODUCT USED FOR UNKNOWN INDICATION
     Route: 065
  84. BIFIDOBACTERIUM BIFIDUM [Suspect]
     Active Substance: BIFIDOBACTERIUM BIFIDUM
     Indication: PRODUCT USED FOR UNKNOWN INDICATION
     Route: 065
  85. BIOTIN [Suspect]
     Active Substance: BIOTIN
     Indication: PRODUCT USED FOR UNKNOWN INDICATION
     Route: 065
  86. PYRIDOXINE HYDROCHLORIDE. [Suspect]
     Active Substance: PYRIDOXINE HYDROCHLORIDE
     Indication: PRODUCT USED FOR UNKNOWN INDICATION
     Route: 065
  87. VITAMIN D3 [Suspect]
     Active Substance: CHOLECALCIFEROL
     Indication: PRODUCT USED FOR UNKNOWN INDICATION
     Route: 065
  88. VITAMIN A [Suspect]
     Active Substance: VITAMIN A
     Route: 048
  89. CLORPRENALINE HYDROCHLORIDE [Suspect]
     Active Substance: CLORPRENALINE HYDROCHLORIDE
     Indication: PRODUCT USED FOR UNKNOWN INDICATION
     Route: 065
  90. DEXPANTHENOL. [Suspect]
     Active Substance: DEXPANTHENOL
     Indication: PRODUCT USED FOR UNKNOWN INDICATION
     Route: 048
  91. DULOXETINE HYDROCHLORIDE. [Suspect]
     Active Substance: DULOXETINE HYDROCHLORIDE
     Indication: PRODUCT USED FOR UNKNOWN INDICATION
     Route: 048
  92. OMEGA?3 MARINE TRIGLYCERIDES [Suspect]
     Active Substance: OMEGA-3-ACID ETHYL ESTERS
     Indication: PRODUCT USED FOR UNKNOWN INDICATION
     Route: 048
  93. SULFADIAZINE. [Suspect]
     Active Substance: SULFADIAZINE
     Route: 065
  94. CYANOCOBALAMIN. [Suspect]
     Active Substance: CYANOCOBALAMIN
     Route: 065
  95. DOCUSATE SODIUM. [Suspect]
     Active Substance: DOCUSATE SODIUM
     Indication: PRODUCT USED FOR UNKNOWN INDICATION
     Route: 065
  96. APO?FUROSEMIDE [Suspect]
     Active Substance: FUROSEMIDE
     Indication: PRODUCT USED FOR UNKNOWN INDICATION
     Route: 065
  97. NOVO?HYDRAZIDE [Suspect]
     Active Substance: HYDROCHLOROTHIAZIDE
     Indication: PRODUCT USED FOR UNKNOWN INDICATION
     Route: 065
  98. FISH OIL [Suspect]
     Active Substance: FISH OIL
     Indication: PRODUCT USED FOR UNKNOWN INDICATION
     Route: 048
  99. CHOLECALCIFEROL [Suspect]
     Active Substance: CHOLECALCIFEROL
     Indication: PRODUCT USED FOR UNKNOWN INDICATION
     Route: 065
  100. ERGOCALCIFEROL. [Suspect]
     Active Substance: ERGOCALCIFEROL
     Indication: PRODUCT USED FOR UNKNOWN INDICATION
     Route: 065
  101. HYDROMORPHONE HYDROCHLORIDE. [Suspect]
     Active Substance: HYDROMORPHONE HYDROCHLORIDE
     Indication: PRODUCT USED FOR UNKNOWN INDICATION
     Route: 065
  102. INOSITOL [Suspect]
     Active Substance: INOSITOL
     Indication: PRODUCT USED FOR UNKNOWN INDICATION
     Route: 065
  103. LACTOBACILLUS CASEI [Suspect]
     Active Substance: LACTOBACILLUS CASEI
     Indication: PRODUCT USED FOR UNKNOWN INDICATION
     Route: 065
  104. PYRIDOXINE HYDROCHLORIDE. [Suspect]
     Active Substance: PYRIDOXINE HYDROCHLORIDE
     Indication: PRODUCT USED FOR UNKNOWN INDICATION
     Route: 065
  105. SALMO SALAR OIL [Suspect]
     Active Substance: ATLANTIC SALMON OIL
     Indication: PRODUCT USED FOR UNKNOWN INDICATION
     Route: 065
  106. SULFAMETHOXAZOLE [Suspect]
     Active Substance: SULFAMETHOXAZOLE
     Route: 065
  107. VITAMIN B COMPLEX [Suspect]
     Active Substance: CYANOCOBALAMIN\DEXPANTHENOL\NIACINAMIDE\PYRIDOXINE HYDROCHLORIDE\RIBOFLAVIN 5^-PHOSPHATE SODIUM\THIAMINE HYDROCHLORIDE\VITAMIN B COMPLEX
     Indication: PRODUCT USED FOR UNKNOWN INDICATION
     Route: 065
  108. BIFIDOBACTERIUM LONGUM;LACTOBACILLUS ACIDOPHILUS;STREPTOCOCCUS LACTIS; [Suspect]
     Active Substance: PROBIOTICS NOS
     Indication: PRODUCT USED FOR UNKNOWN INDICATION
     Route: 065
  109. CLARITIN ALLERGY + SINUS [Suspect]
     Active Substance: LORATADINE\PSEUDOEPHEDRINE SULFATE
     Indication: PRODUCT USED FOR UNKNOWN INDICATION
     Route: 065

REACTIONS (5)
  - Gastrooesophageal reflux disease [Recovered/Resolved]
  - Underdose [Recovered/Resolved]
  - Pneumonia aspiration [Recovered/Resolved]
  - Somnolence [Recovered/Resolved]
  - Coma [Recovered/Resolved]
